FAERS Safety Report 4932606-5 (Version None)
Quarter: 2006Q1

REPORT INFORMATION
  Report Type: 
  Country: None (occurrence: None)
  Receive Date: 20060301
  Receipt Date: 20060216
  Transmission Date: 20060701
  Serious: Yes (Life-Threatening, Hospitalization)
  Sender: FDA-Public Use
  Company Number: 144-20785-06010605

PATIENT
  Age: 75 Year
  Sex: Female

DRUGS (9)
  1. THALOMID [Suspect]
     Indication: ANGIODYSPLASIA
     Dosage: 100 MG, QD, ORAL
     Route: 048
     Dates: start: 20060102, end: 20060120
  2. ALDACTONE [Concomitant]
  3. FUROSEMIDE [Concomitant]
  4. HEPARIN [Concomitant]
  5. ENOXAPARIN SODIUM [Concomitant]
  6. IRON (IRON) [Concomitant]
  7. OMEPRAZOLE [Concomitant]
  8. LACTITOL (LACTITOL) [Concomitant]
  9. HYDROCORTISONE [Concomitant]

REACTIONS (27)
  - ABDOMINAL MASS [None]
  - ABDOMINAL PAIN [None]
  - ANGIOPATHY [None]
  - ASPARTATE AMINOTRANSFERASE INCREASED [None]
  - ATRIAL FIBRILLATION [None]
  - BLOOD CREATININE INCREASED [None]
  - BLOOD GLUCOSE INCREASED [None]
  - BLOOD POTASSIUM INCREASED [None]
  - BLOOD SODIUM DECREASED [None]
  - BLOOD UREA INCREASED [None]
  - BREATH SOUNDS ABNORMAL [None]
  - BUNDLE BRANCH BLOCK LEFT [None]
  - CARDIAC FAILURE CONGESTIVE [None]
  - CARDIAC MURMUR [None]
  - CARDIOMEGALY [None]
  - CEREBRAL ISCHAEMIA [None]
  - CREPITATIONS [None]
  - DEMYELINATION [None]
  - DEPRESSED LEVEL OF CONSCIOUSNESS [None]
  - GASTROINTESTINAL HAEMORRHAGE [None]
  - HEPATIC ENCEPHALOPATHY [None]
  - HEPATOMEGALY [None]
  - LOSS OF CONSCIOUSNESS [None]
  - MUCOUS MEMBRANE DISORDER [None]
  - PITTING OEDEMA [None]
  - PROTHROMBIN TIME ABNORMAL [None]
  - WHITE BLOOD CELL COUNT INCREASED [None]
